FAERS Safety Report 8983826 (Version 1)
Quarter: 2012Q4

REPORT INFORMATION
  Report Type: 
  Country: AU (occurrence: AU)
  Receive Date: 20121224
  Receipt Date: 20121224
  Transmission Date: 20130627
  Serious: Yes (Other)
  Sender: FDA-Public Use
  Company Number: AU-ROCHE-1172444

PATIENT
  Sex: Female

DRUGS (1)
  1. ROACCUTANE [Suspect]
     Indication: PRODUCT USED FOR UNKNOWN INDICATION
     Route: 065

REACTIONS (8)
  - Depression [Unknown]
  - Crying [Unknown]
  - Fatigue [Unknown]
  - Dizziness [Unknown]
  - Disturbance in attention [Unknown]
  - Increased appetite [Unknown]
  - Myalgia [Unknown]
  - Seborrhoea [Unknown]
